FAERS Safety Report 20510812 (Version 4)
Quarter: 2022Q2

REPORT INFORMATION
  Report Type: Report from Study
  Country: BR (occurrence: BR)
  Receive Date: 20220224
  Receipt Date: 20220527
  Transmission Date: 20220721
  Serious: Yes (Hospitalization, Other)
  Sender: FDA-Public Use
  Company Number: BR-AMGEN-BRASL2022028552

PATIENT
  Age: 50 Year
  Sex: Female

DRUGS (4)
  1. VECTIBIX [Suspect]
     Active Substance: PANITUMUMAB
     Indication: Metastatic gastric cancer
     Dosage: UNK UNK, Q2WK (EVERY 15 DAYS, BIWEEKLY)
     Route: 042
     Dates: start: 20220131
  2. OMEPRAZOLE [Concomitant]
     Active Substance: OMEPRAZOLE
     Indication: Abdominal discomfort
     Dosage: UNK
     Route: 065
  3. PURAN [Concomitant]
     Active Substance: LEVOTHYROXINE SODIUM
     Indication: Thyroid disorder
     Dosage: UNK
     Route: 065
  4. LOSARTAN [Concomitant]
     Active Substance: LOSARTAN
     Indication: Blood pressure management
     Dosage: UNK
     Route: 065

REACTIONS (25)
  - Haematemesis [Not Recovered/Not Resolved]
  - Vomiting [Recovering/Resolving]
  - Oesophageal ulcer [Unknown]
  - Pharyngeal ulceration [Unknown]
  - Asthenia [Not Recovered/Not Resolved]
  - Nausea [Recovering/Resolving]
  - Acne [Not Recovered/Not Resolved]
  - Skin exfoliation [Not Recovered/Not Resolved]
  - Diarrhoea [Unknown]
  - Pruritus [Not Recovered/Not Resolved]
  - Feeling abnormal [Not Recovered/Not Resolved]
  - Illness [Not Recovered/Not Resolved]
  - Eating disorder [Not Recovered/Not Resolved]
  - Burning sensation [Unknown]
  - Muscle fatigue [Unknown]
  - Oral mucosal blistering [Recovering/Resolving]
  - Skin swelling [Recovering/Resolving]
  - Genital ulceration [Recovering/Resolving]
  - Skin wrinkling [Not Recovered/Not Resolved]
  - Salivary hypersecretion [Not Recovered/Not Resolved]
  - Fatigue [Recovering/Resolving]
  - Aphthous ulcer [Not Recovered/Not Resolved]
  - Dysphonia [Unknown]
  - Cough [Unknown]
  - Oropharyngeal discomfort [Unknown]

NARRATIVE: CASE EVENT DATE: 20220101
